FAERS Safety Report 23887515 (Version 1)
Quarter: 2024Q2

REPORT INFORMATION
  Report Type: Report from Study
  Country: EG (occurrence: EG)
  Receive Date: 20240523
  Receipt Date: 20240523
  Transmission Date: 20240715
  Serious: Yes (Other)
  Sender: FDA-Public Use
  Company Number: EG-002147023-NVSC2024EG098971

PATIENT
  Sex: Female
  Weight: 90 kg

DRUGS (1)
  1. GILENYA [Suspect]
     Active Substance: FINGOLIMOD HYDROCHLORIDE
     Indication: Multiple sclerosis
     Dosage: UNK
     Route: 048

REACTIONS (5)
  - Renal impairment [Recovered/Resolved]
  - Liver function test increased [Recovered/Resolved]
  - Abdominal discomfort [Recovering/Resolving]
  - Cerebral disorder [Not Recovered/Not Resolved]
  - Drug ineffective [Unknown]
